FAERS Safety Report 6863422-5 (Version None)
Quarter: 2010Q3

REPORT INFORMATION
  Report Type: 
  Country: None (occurrence: None)
  Receive Date: 20100721
  Receipt Date: 20100709
  Transmission Date: 20110219
  Serious: Yes (Other)
  Sender: FDA-Public Use
  Company Number: FI-PFIZER INC-2010086211

PATIENT
  Age: 35 Year
  Sex: Female

DRUGS (2)
  1. XANOR DEPOT [Suspect]
     Dosage: 1 MG, 2X/DAY
     Dates: start: 20100604
  2. RISOLID [Concomitant]
     Dosage: 1-3 TABLETS DAILY AS NEEDED

REACTIONS (6)
  - AGITATION [None]
  - BLOOD PRESSURE DIASTOLIC INCREASED [None]
  - FEELING ABNORMAL [None]
  - IRRITABILITY [None]
  - NERVOUSNESS [None]
  - WITHDRAWAL SYNDROME [None]
